FAERS Safety Report 6345301-5 (Version None)
Quarter: 2009Q3

REPORT INFORMATION
  Report Type: 
  Country: None (occurrence: None)
  Receive Date: 20090909
  Receipt Date: 20090831
  Transmission Date: 20100115
  Serious: Yes (Death, Other)
  Sender: FDA-Public Use
  Company Number: ES-WYE-G04337109

PATIENT
  Age: 69 Year
  Sex: Male

DRUGS (6)
  1. TAZOCEL [Suspect]
     Dosage: UNKNOWN
     Route: 042
     Dates: start: 20080831, end: 20080922
  2. PANTOPRAZOLE SODIUM [Interacting]
     Dosage: UNKNOWN
     Route: 042
     Dates: start: 20080828
  3. EDEMOX [Concomitant]
     Dosage: UNKNOWN
     Route: 042
     Dates: start: 20080907, end: 20080918
  4. TEICOPLANIN [Interacting]
     Dosage: UNKNOWN
     Route: 042
     Dates: start: 20080828, end: 20080915
  5. AMIODARONE HYDROCHLORIDE [Interacting]
     Dosage: UNKNOWN
     Route: 042
     Dates: start: 20080808, end: 20080930
  6. HIBOR [Interacting]
     Dosage: UNKNOWN
     Route: 058
     Dates: start: 20080830

REACTIONS (3)
  - CARDIOGENIC SHOCK [None]
  - DRUG INTERACTION [None]
  - HEPATITIS CHOLESTATIC [None]
